FAERS Safety Report 23794805 (Version 1)
Quarter: 2024Q2

REPORT INFORMATION
  Report Type: Other
  Country: US (occurrence: None)
  Receive Date: 20240429
  Receipt Date: 20240429
  Transmission Date: 20240716
  Serious: Yes (Hospitalization)
  Sender: FDA-Public Use
  Company Number: US-ROCHE-3546546

PATIENT
  Age: 70 Year
  Sex: Male
  Weight: 88.076 kg

DRUGS (13)
  1. OCREVUS [Suspect]
     Active Substance: OCRELIZUMAB
     Indication: Relapsing multiple sclerosis
     Dosage: INFUSE 300MG ON WEEK(S) 0 AND WEEK(S) 2 THEN 600MG EVERY 6 MONTH(S)
     Route: 042
     Dates: start: 20230427
  2. ATORVASTATIN [Concomitant]
     Active Substance: ATORVASTATIN
     Dosage: ORAL TAB, 40 MG DAILY ONCE
  3. LANSOPRAZOLE [Concomitant]
     Active Substance: LANSOPRAZOLE
     Dosage: ORAL TAB, 30 MG DAILY ONCE
  4. PREGABALIN [Concomitant]
     Active Substance: PREGABALIN
     Dosage: ORAL TAB, 150 MG DAILY ONCE
  5. PRAMIPEXOLE [Concomitant]
     Active Substance: PRAMIPEXOLE\PRAMIPEXOLE DIHYDROCHLORIDE
     Dosage: ORAL TAB, 125 MCG DAILY ONCE
  6. GEMTESA [Concomitant]
     Active Substance: VIBEGRON
     Dosage: PERITUMORAL USE TAB, 75 MG DAILY ONCE
  7. LINZESS [Concomitant]
     Active Substance: LINACLOTIDE
     Indication: Constipation
     Dosage: ORAL TAB, 290 UNIT NOT REPORTED DAILY ONCE
  8. FLUOXETINE [Concomitant]
     Active Substance: FLUOXETINE HYDROCHLORIDE
     Dosage: ORAL TAB, 50  MG DAILY ONCE
  9. MAGNESIUM [Concomitant]
     Active Substance: MAGNESIUM
     Dosage: ORAL TAB, 400 MG DAILY ONCE
  10. VITAMIN C [Concomitant]
     Active Substance: ASCORBIC ACID
     Dosage: ORAL TAB, 1000 MG DAILY ONCE
  11. VITAMIN D3 [Concomitant]
     Active Substance: CHOLECALCIFEROL
     Dosage: 125 UNIT NOT REPORTED, ORAL TAB, DAILY ONCE
  12. COENZYME Q10 [Concomitant]
     Active Substance: DIETARY SUPPLEMENT\UBIDECARENONE
     Dosage: ORAL TAB, 200 MG DAILY ONCE
  13. ASPIRIN [Concomitant]
     Active Substance: ASPIRIN
     Dosage: ORAL TAB, 81 MG DAILY ONCE

REACTIONS (5)
  - White blood cell count increased [Recovering/Resolving]
  - Urinary tract infection [Recovering/Resolving]
  - Multiple sclerosis [Not Recovered/Not Resolved]
  - Fall [Unknown]
  - Drug ineffective [Unknown]

NARRATIVE: CASE EVENT DATE: 20231101
